FAERS Safety Report 6490078-6 (Version None)
Quarter: 2009Q4

REPORT INFORMATION
  Report Type: 
  Country: None (occurrence: None)
  Receive Date: 20091211
  Receipt Date: 20081212
  Transmission Date: 20100525
  Serious: No
  Sender: FDA-Public Use
  Company Number: A0760948A

PATIENT

DRUGS (2)
  1. FLUTICASONE PROPIONATE [Suspect]
     Indication: DRUG USE FOR UNKNOWN INDICATION
     Route: 045
  2. FLONASE [Concomitant]
     Route: 045

REACTIONS (1)
  - DRUG INEFFECTIVE [None]
